FAERS Safety Report 8005478-2 (Version None)
Quarter: 2011Q4

REPORT INFORMATION
  Report Type: 
  Country: None (occurrence: None)
  Receive Date: 20111223
  Receipt Date: 20111209
  Transmission Date: 20120403
  Serious: Yes (Other)
  Sender: FDA-Public Use
  Company Number: DE-CELGENEUS-062-21880-11121374

PATIENT
  Age: 53 Year
  Sex: Male
  Weight: 97 kg

DRUGS (8)
  1. REVLIMID [Suspect]
     Indication: MULTIPLE MYELOMA
     Dosage: 25 MILLIGRAM
     Route: 048
     Dates: start: 20110607, end: 20110628
  2. DEXAMETHASONE [Suspect]
     Dosage: 40 MILLIGRAM
     Route: 048
     Dates: start: 20110831, end: 20110919
  3. ADRIAMYCIN PFS [Suspect]
     Dosage: 9 MILLIGRAM/SQ. METER
     Route: 041
     Dates: start: 20110705, end: 20110708
  4. ADRIAMYCIN PFS [Suspect]
     Indication: MULTIPLE MYELOMA
     Dosage: 9 MILLIGRAM/SQ. METER
     Route: 041
     Dates: start: 20110607, end: 20110610
  5. ADRIAMYCIN PFS [Suspect]
     Dosage: 9 MILLIGRAM/SQ. METER
     Route: 041
     Dates: start: 20110831, end: 20110903
  6. ADRIAMYCIN PFS [Suspect]
     Dosage: 9 MILLIGRAM/SQ. METER
     Route: 041
     Dates: start: 20110802, end: 20110805
  7. DEXAMETHASONE [Suspect]
     Indication: MULTIPLE MYELOMA
     Dosage: 40 MILLIGRAM
     Route: 048
     Dates: start: 20110607, end: 20110626
  8. REVLIMID [Suspect]
     Dosage: 25 MILLIGRAM
     Route: 048
     Dates: start: 20110831, end: 20110920

REACTIONS (2)
  - SUPERFICIAL SPREADING MELANOMA STAGE I [None]
  - MALIGNANT MELANOMA STAGE II [None]
